FAERS Safety Report 9455383 (Version 1)
Quarter: 2013Q3

REPORT INFORMATION
  Report Type: Report from Study
  Country: BR (occurrence: BR)
  Receive Date: 20130813
  Receipt Date: 20130813
  Transmission Date: 20140515
  Serious: Yes (Life-Threatening, Hospitalization, Other)
  Sender: FDA-Public Use
  Company Number: PHHY2013BR085890

PATIENT
  Sex: Male
  Weight: 95 kg

DRUGS (5)
  1. RITALIN LA [Suspect]
     Indication: ATTENTION DEFICIT/HYPERACTIVITY DISORDER
     Dosage: 1 DF, DAILY
     Route: 048
     Dates: start: 2009
  2. RITALINA [Suspect]
     Indication: ATTENTION DEFICIT/HYPERACTIVITY DISORDER
     Dosage: 3 DF, DAILY
     Route: 048
  3. RITALINA [Suspect]
     Dosage: 4 DF, DAILY
     Route: 048
  4. DIAZEPAM [Suspect]
     Dosage: UNK UKN, UNK
     Dates: start: 2009
  5. SALINE [Concomitant]
     Dosage: UNK UKN, UNK

REACTIONS (5)
  - Sepsis [Unknown]
  - Coma [Unknown]
  - Pain [Unknown]
  - Confusional state [Unknown]
  - Malaise [Unknown]
